FAERS Safety Report 7586767-2 (Version None)
Quarter: 2011Q2

REPORT INFORMATION
  Report Type: 
  Country: None (occurrence: None)
  Receive Date: 20110603
  Receipt Date: 20110415
  Transmission Date: 20111010
  Serious: No
  Sender: FDA-Public Use
  Company Number: 2011SP017261

PATIENT
  Age: 18 Year
  Sex: Female

DRUGS (3)
  1. SAPHRIS [Suspect]
     Indication: AFFECTIVE DISORDER
     Dosage: 5 MG;BID ; 5 MG;HS
  2. SAPHRIS [Suspect]
     Indication: EATING DISORDER
     Dosage: 5 MG;BID ; 5 MG;HS
  3. PAXIL [Concomitant]

REACTIONS (4)
  - EYE MOVEMENT DISORDER [None]
  - UNDERDOSE [None]
  - INAPPROPRIATE SCHEDULE OF DRUG ADMINISTRATION [None]
  - EYE PAIN [None]
